FAERS Safety Report 20966322 (Version 1)
Quarter: 2022Q2

REPORT INFORMATION
  Report Type: Report from Study
  Country: US (occurrence: US)
  Receive Date: 20220616
  Receipt Date: 20220616
  Transmission Date: 20220721
  Serious: No
  Sender: FDA-Public Use
  Company Number: US-Ipsen Biopharmaceuticals, Inc.-2022-17209

PATIENT
  Age: 4 Year
  Sex: Male

DRUGS (1)
  1. SOMATULINE DEPOT [Suspect]
     Active Substance: LANREOTIDE ACETATE
     Indication: Acromegaly
     Dosage: 60MG/ 0.2 ML
     Route: 058
     Dates: start: 202012

REACTIONS (2)
  - Abnormal faeces [Recovering/Resolving]
  - Therapeutic response decreased [Unknown]
